FAERS Safety Report 6106336-0 (Version None)
Quarter: 2009Q1

REPORT INFORMATION
  Report Type: 
  Country: None (occurrence: None)
  Receive Date: 20090306
  Receipt Date: 20090302
  Transmission Date: 20090719
  Serious: Yes (Death, Hospitalization, Other)
  Sender: FDA-Public Use
  Company Number: PHHY2008FR32516

PATIENT
  Sex: Male

DRUGS (2)
  1. GLEEVEC [Suspect]
     Indication: GASTROINTESTINAL STROMAL TUMOUR
     Dosage: 200 MG DAILY
     Dates: start: 20071206, end: 20080818
  2. SUTENT [Concomitant]
     Dosage: 37.5 MG, QD
     Dates: start: 20080818

REACTIONS (6)
  - ABDOMINAL PAIN [None]
  - DISEASE PROGRESSION [None]
  - GENERAL PHYSICAL HEALTH DETERIORATION [None]
  - HYPERGLYCAEMIA [None]
  - LUNG DISORDER [None]
  - MUSCLE FATIGUE [None]
